FAERS Safety Report 8489853-8 (Version None)
Quarter: 2012Q3

REPORT INFORMATION
  Report Type: 
  Country: None (occurrence: None)
  Receive Date: 20120705
  Receipt Date: 20120629
  Transmission Date: 20120928
  Serious: Yes (Hospitalization)
  Sender: FDA-Public Use
  Company Number: PHHO2012US009806

PATIENT
  Sex: Male
  Weight: 103.2 kg

DRUGS (28)
  1. FLUOROURACIL [Suspect]
     Indication: HEAD AND NECK CANCER
  2. FLUOROURACIL [Suspect]
     Dosage: 1400 MG / DAY CIV FOR 120 HOURS
     Dates: start: 20110313, end: 20110318
  3. HYDROXYUREA [Suspect]
     Dosage: 500 MG, BID
     Route: 048
     Dates: start: 20110313, end: 20110318
  4. BLINDED NO TREATMENT RECEIVED [Suspect]
     Indication: HEAD AND NECK CANCER
     Dosage: NO TREATMENT
  5. PLACEBO [Suspect]
     Indication: HEAD AND NECK CANCER
     Dosage: NO TREATMENT
  6. SENNA-MINT WAF [Concomitant]
  7. DULCOLAX [Concomitant]
  8. PERCOCET [Concomitant]
  9. FENTANYL [Concomitant]
  10. LORAZEPAM [Concomitant]
  11. REMERON [Concomitant]
  12. AFINITOR [Suspect]
     Indication: HEAD AND NECK CANCER
     Dosage: NO TREATMENT
  13. ACETAMINOPHEN [Concomitant]
  14. NEURONTIN [Concomitant]
  15. CLARITIN [Concomitant]
  16. NEXIUM [Concomitant]
  17. LANTUS [Concomitant]
  18. NASAL SALINE [Concomitant]
  19. BENADRYL [Concomitant]
  20. COMPARATOR CETUXIMAB [Suspect]
     Dosage: 576 MG, QW
     Route: 042
     Dates: start: 20110314
  21. HYDROXYUREA [Suspect]
     Indication: HEAD AND NECK CANCER
     Route: 048
  22. M.V.I. [Concomitant]
  23. COMPARATOR CETUXIMAB [Suspect]
     Indication: HEAD AND NECK CANCER
     Route: 042
  24. LIDOCAINE HCL VISCOUS [Concomitant]
  25. INSULIN [Concomitant]
  26. LIDODERM [Concomitant]
  27. ONDANSETRON [Concomitant]
  28. GUAIFENESIN [Concomitant]

REACTIONS (2)
  - PNEUMONIA ASPIRATION [None]
  - DEHYDRATION [None]
